FAERS Safety Report 7949186-2 (Version None)
Quarter: 2011Q4

REPORT INFORMATION
  Report Type: 
  Country: None (occurrence: None)
  Receive Date: 20111130
  Receipt Date: 20111123
  Transmission Date: 20120403
  Serious: Yes (Hospitalization, Other)
  Sender: FDA-Public Use
  Company Number: US-ROCHE-778811

PATIENT
  Sex: Female
  Weight: 57.204 kg

DRUGS (3)
  1. ACCUTANE [Suspect]
     Indication: ACNE CYSTIC
     Dates: start: 19900717, end: 19901201
  2. ACCUTANE [Suspect]
     Dates: start: 19910102, end: 19920601
  3. CHLOROQUINE DIPHOSPHATE [Concomitant]
     Dosage: FOR 5 WEEKS
     Dates: start: 19920401

REACTIONS (16)
  - HYPERCOAGULATION [None]
  - PELVIC ABSCESS [None]
  - COORDINATION ABNORMAL [None]
  - COLITIS ULCERATIVE [None]
  - INJURY [None]
  - CEREBROVASCULAR ACCIDENT [None]
  - ANAEMIA [None]
  - VITH NERVE PARALYSIS [None]
  - INFERTILITY [None]
  - INTESTINAL HAEMORRHAGE [None]
  - INTESTINAL OBSTRUCTION [None]
  - INFLAMMATORY BOWEL DISEASE [None]
  - POUCHITIS [None]
  - PERITONEAL CYST [None]
  - EYE INJURY [None]
  - PELVIC ADHESIONS [None]
